FAERS Safety Report 20720725 (Version 1)
Quarter: 2022Q2

REPORT INFORMATION
  Report Type: Spontaneous
  Country: US (occurrence: None)
  Receive Date: 20220418
  Receipt Date: 20220418
  Transmission Date: 20220721
  Serious: No
  Sender: FDA-Public Use
  Company Number: None

PATIENT
  Age: 83 Year
  Sex: Male

DRUGS (6)
  1. ERIVEDGE [Suspect]
     Active Substance: VISMODEGIB
     Indication: Basal cell carcinoma
     Dosage: FREQUENCY : DAILY;?
     Route: 048
     Dates: start: 20220223
  2. CRANBERRY 200MG CAP [Concomitant]
  3. FISH OIL 1000MG CAP [Concomitant]
  4. METAMUCIL POWDER 283GM [Concomitant]
  5. OCUTIVE TAB [Concomitant]
  6. PROBIOTIC CAP [Concomitant]

REACTIONS (2)
  - Diarrhoea [None]
  - Fatigue [None]
